FAERS Safety Report 9363848 (Version 2)
Quarter: 2013Q3

REPORT INFORMATION
  Report Type: Spontaneous
  Country: BR (occurrence: BR)
  Receive Date: 20130624
  Receipt Date: 20130719
  Transmission Date: 20140515
  Serious: Yes (Other)
  Sender: FDA-Public Use
  Company Number: BR-PFIZER INC-2013186160

PATIENT
  Sex: Female

DRUGS (2)
  1. PRISTIQ [Suspect]
     Indication: ANXIETY
     Dosage: 50 MG, 1X/DAY
     Route: 048
     Dates: start: 2010, end: 201305
  2. PURAN T4 [Concomitant]
     Indication: THYROID DISORDER
     Dosage: UNK
     Dates: start: 2003

REACTIONS (2)
  - Off label use [Recovered/Resolved]
  - Major depression [Unknown]
